FAERS Safety Report 8613951-9 (Version None)
Quarter: 2012Q3

REPORT INFORMATION
  Report Type: 
  Country: None (occurrence: None)
  Receive Date: 20120823
  Receipt Date: 20120820
  Transmission Date: 20120928
  Serious: No
  Sender: FDA-Public Use
  Company Number: US-PFIZER INC-2012204857

PATIENT
  Sex: Male

DRUGS (3)
  1. LORTAB [Suspect]
     Indication: HEADACHE
     Dosage: UNK
  2. METHADONE HCL [Suspect]
     Indication: HEADACHE
     Dosage: UNK
  3. OXYCODONE HCL [Suspect]
     Indication: HEADACHE
     Dosage: UNK

REACTIONS (1)
  - DRUG EFFECT DECREASED [None]
